FAERS Safety Report 6916658-9 (Version None)
Quarter: 2010Q3

REPORT INFORMATION
  Report Type: 
  Country: None (occurrence: None)
  Receive Date: 20100805
  Receipt Date: 20100730
  Transmission Date: 20110219
  Serious: Yes (Other)
  Sender: FDA-Public Use
  Company Number: 2010SP041474

PATIENT
  Age: 42 Year
  Sex: Male

DRUGS (2)
  1. DESLORATADINE [Suspect]
     Dates: start: 20100101, end: 20100728
  2. RABEPRAZOLE SODIUM [Concomitant]

REACTIONS (2)
  - BLOOD CHOLESTEROL ABNORMAL [None]
  - BLOOD TRIGLYCERIDES ABNORMAL [None]
